FAERS Safety Report 6618980-2 (Version None)
Quarter: 2010Q1

REPORT INFORMATION
  Report Type: 
  Country: None (occurrence: None)
  Receive Date: 20100308
  Receipt Date: 20100223
  Transmission Date: 20100710
  Serious: Yes (Other)
  Sender: FDA-Public Use
  Company Number: PHHY2010TW10452

PATIENT
  Sex: Female
  Weight: 57 kg

DRUGS (3)
  1. ZOMETA [Suspect]
     Indication: METASTASES TO BONE
     Dosage: 4 MG Q4W
     Route: 042
     Dates: start: 20090803, end: 20100118
  2. EXEMESTANE [Suspect]
     Indication: BREAST CANCER
     Dosage: 25 MG, QD
     Dates: start: 20100118
  3. TRASTUZUMAB [Suspect]
     Indication: BREAST CANCER
     Dosage: 440 MH Q4W
     Dates: start: 20090803

REACTIONS (5)
  - ABSCESS ORAL [None]
  - CELLULITIS [None]
  - DENTURE WEARER [None]
  - MASS [None]
  - OSTEOMYELITIS [None]
